FAERS Safety Report 9881223 (Version 2)
Quarter: 2014Q1

REPORT INFORMATION
  Report Type: Spontaneous
  Country: JP (occurrence: JP)
  Receive Date: 20140207
  Receipt Date: 20140207
  Transmission Date: 20141002
  Serious: Yes (Other)
  Sender: FDA-Public Use
  Company Number: JP-PFIZER INC-2013153005

PATIENT
  Sex: Female

DRUGS (2)
  1. CARDENALIN [Suspect]
     Indication: HYPERTENSION
     Dosage: 2 MG, 1X/DAY IN THE EVENING
     Route: 048
     Dates: start: 20130520
  2. BAYASPIRIN [Suspect]
     Dosage: UNK
     Route: 048

REACTIONS (5)
  - Haemorrhage subcutaneous [Not Recovered/Not Resolved]
  - Rash [Not Recovered/Not Resolved]
  - Oedema peripheral [Unknown]
  - Red blood cell count decreased [Unknown]
  - Haematocrit decreased [Unknown]
